FAERS Safety Report 24314026 (Version 1)
Quarter: 2024Q3

REPORT INFORMATION
  Report Type: Other
  Country: US (occurrence: US)
  Receive Date: 20240912
  Receipt Date: 20240912
  Transmission Date: 20241017
  Serious: No
  Sender: SIGMA TAU
  Company Number: US-LEADIANT BIOSCIENCES, INC.-2024LBI000216

PATIENT
  Sex: Female

DRUGS (1)
  1. MATULANE [Suspect]
     Active Substance: PROCARBAZINE HYDROCHLORIDE
     Indication: Non-Hodgkin^s lymphoma
     Dosage: 50 MILLIGRAMS, 3 CAPSULES (150 MG TOTAL) ONCE DAILY FOR 7 DOSES ON DAYS 2-8 DURING CYCLE 1,3,5
     Route: 048
     Dates: start: 20240521

REACTIONS (3)
  - Constipation [Unknown]
  - Fatigue [Unknown]
  - Product dose omission issue [Unknown]
